FAERS Safety Report 5264692-X (Version None)
Quarter: 2007Q1

REPORT INFORMATION
  Report Type: 
  Country: None (occurrence: None)
  Receive Date: 20070314
  Receipt Date: 20070301
  Transmission Date: 20070707
  Serious: Yes (Other)
  Sender: FDA-Public Use
  Company Number: PHBS2007BR04232

PATIENT
  Age: 1 Day
  Weight: 2.4 kg

DRUGS (2)
  1. ELIDEL [Suspect]
     Route: 064
  2. COMBIRON B 12 [Concomitant]
     Route: 064

REACTIONS (2)
  - DRUG EXPOSURE DURING PREGNANCY [None]
  - PREMATURE BABY [None]
